FAERS Safety Report 4808345-8 (Version None)
Quarter: 2005Q4

REPORT INFORMATION
  Report Type: 
  Country: None (occurrence: None)
  Receive Date: 20051021
  Receipt Date: 20040419
  Transmission Date: 20060501
  Serious: No
  Sender: FDA-Public Use
  Company Number: US_0404102459

PATIENT
  Age: 43 Year
  Sex: Male
  Weight: 115 kg

DRUGS (2)
  1. ZYPREXA [Suspect]
     Indication: SCHIZOPHRENIA
     Dosage: 5 MG/1 DAY
     Route: 048
     Dates: start: 19970101
  2. CHLORELLA [Concomitant]

REACTIONS (1)
  - LYMPHOCYTE COUNT INCREASED [None]
